FAERS Safety Report 24415447 (Version 1)
Quarter: 2024Q4

REPORT INFORMATION
  Report Type: Report from Study
  Country: IN (occurrence: IN)
  Receive Date: 20241009
  Receipt Date: 20241009
  Transmission Date: 20250115
  Serious: Yes (Other)
  Sender: ROCHE
  Company Number: IN-002147023-NVSC2024IN196743

PATIENT
  Age: 89 Year
  Sex: Male

DRUGS (1)
  1. RANIBIZUMAB [Suspect]
     Active Substance: RANIBIZUMAB
     Indication: Retinal vein occlusion
     Dosage: UNK UNK, OTHER
     Route: 050
     Dates: start: 20230306

REACTIONS (2)
  - Posterior capsule opacification [Unknown]
  - Retinal haemorrhage [Unknown]
